FAERS Safety Report 9997929 (Version 1)
Quarter: 2014Q1

REPORT INFORMATION
  Report Type: Spontaneous
  Country: US (occurrence: None)
  Receive Date: 20140224
  Receipt Date: 20140224
  Transmission Date: 20141002
  Serious: Yes (Hospitalization)
  Sender: FDA-Public Use
  Company Number: PHEH2013US001478

PATIENT
  Age: 20 Year
  Sex: Male

DRUGS (2)
  1. TOBI [Suspect]
     Indication: CYSTIC FIBROSIS
     Route: 055
  2. TOBI [Suspect]
     Route: 055

REACTIONS (1)
  - Dyspnoea [None]
